FAERS Safety Report 9942935 (Version 1)
Quarter: 2014Q1

REPORT INFORMATION
  Report Type: Report from Study
  Country: US (occurrence: US)
  Receive Date: 20140303
  Receipt Date: 20140303
  Transmission Date: 20141002
  Serious: No
  Sender: FDA-Public Use
  Company Number: US-ABBVIE-13P-163-1044202-00

PATIENT
  Age: 82 Year
  Sex: Female

DRUGS (8)
  1. HUMIRA [Suspect]
     Indication: PSORIASIS
  2. HYDROCHLOROTHIAZIDE [Concomitant]
     Indication: PRODUCT USED FOR UNKNOWN INDICATION
  3. METIORIKIK [Concomitant]
     Indication: ATRIAL FIBRILLATION
  4. ALLOPURINOL [Concomitant]
     Indication: GOUT
  5. WARFARIN [Concomitant]
     Indication: ATRIAL FIBRILLATION
  6. VESICARE [Concomitant]
     Indication: POLLAKIURIA
  7. VITAMIN D [Concomitant]
     Indication: PRODUCT USED FOR UNKNOWN INDICATION
  8. TYLENOL [Concomitant]
     Indication: PRODUCT USED FOR UNKNOWN INDICATION

REACTIONS (3)
  - Injection site extravasation [Recovered/Resolved]
  - Urinary tract infection [Recovered/Resolved]
  - Injection site mass [Recovered/Resolved]
